FAERS Safety Report 12308714 (Version 1)
Quarter: 2016Q2

REPORT INFORMATION
  Report Type: Spontaneous
  Country: US (occurrence: US)
  Receive Date: 20160427
  Receipt Date: 20160427
  Transmission Date: 20160815
  Serious: No
  Sender: FDA-Public Use
  Company Number: US-GLENMARK PHARMACEUTICALS INC, USA.-2015GMK020973

PATIENT
  Age: 88 Year
  Sex: Female

DRUGS (6)
  1. BCG [Suspect]
     Active Substance: BCG VACCINE
     Indication: MALIGNANT MELANOMA
     Dosage: UNK
  2. IMIQUIMOD. [Suspect]
     Active Substance: IMIQUIMOD
     Dosage: UNK, OD ON RIGHT FOREHEAD
     Route: 061
  3. IMIQUIMOD. [Suspect]
     Active Substance: IMIQUIMOD
     Dosage: UNK, 5 TIMES PER WEEK
     Route: 061
  4. IMIQUIMOD. [Suspect]
     Active Substance: IMIQUIMOD
     Dosage: UNK, QOD
     Route: 061
  5. IMIQUIMOD. [Suspect]
     Active Substance: IMIQUIMOD
     Indication: MALIGNANT MELANOMA
     Dosage: UNK, OD ON LEFT FOREHEAD
     Route: 061
  6. IMIQUIMOD. [Suspect]
     Active Substance: IMIQUIMOD
     Dosage: UNK, QOD ON LEFT FOREHEAD
     Route: 061

REACTIONS (3)
  - Hypersensitivity [Recovered/Resolved]
  - Therapeutic response unexpected [Unknown]
  - Off label use [Unknown]
